FAERS Safety Report 4763842-9 (Version None)
Quarter: 2005Q3

REPORT INFORMATION
  Report Type: 
  Country: None (occurrence: None)
  Receive Date: 20050901
  Receipt Date: 20050518
  Transmission Date: 20060218
  Serious: No
  Sender: FDA-Public Use
  Company Number: 200510866BWH

PATIENT
  Age: 92 Year
  Sex: Male

DRUGS (1)
  1. LEVITRA [Suspect]
     Indication: ERECTILE DYSFUNCTION
     Dosage: 5 MG, PRN, ORAL
     Route: 048
     Dates: start: 20050429

REACTIONS (1)
  - ERECTILE DYSFUNCTION [None]
